FAERS Safety Report 15473307 (Version 1)
Quarter: 2018Q4

REPORT INFORMATION
  Report Type: Report from Study
  Country: None (occurrence: CO)
  Receive Date: 20181008
  Receipt Date: 20181008
  Transmission Date: 20190205
  Serious: Yes (Hospitalization)
  Sender: FDA-Public Use
  Company Number: CO-ABBVIE-18S-036-2512534-00

PATIENT
  Age: 2 Month
  Sex: Male

DRUGS (1)
  1. SYNAGIS [Suspect]
     Active Substance: PALIVIZUMAB
     Indication: PREMATURE BABY
     Route: 030
     Dates: start: 20180902, end: 20180902

REACTIONS (3)
  - Bronchiolitis [Not Recovered/Not Resolved]
  - Apnoea [Not Recovered/Not Resolved]
  - Respiratory distress [Not Recovered/Not Resolved]

NARRATIVE: CASE EVENT DATE: 20181003
